FAERS Safety Report 12371321 (Version 1)
Quarter: 2016Q2

REPORT INFORMATION
  Report Type: Spontaneous
  Country: ES (occurrence: ES)
  Receive Date: 20160516
  Receipt Date: 20160516
  Transmission Date: 20160815
  Serious: Yes (Other)
  Sender: FDA-Public Use
  Company Number: ES-MYLANLABS-2016M1020244

PATIENT

DRUGS (1)
  1. EPINEPHRINE MYLAN [Suspect]
     Active Substance: EPINEPHRINE
     Indication: ARTHROPOD STING
     Dosage: UNK

REACTIONS (2)
  - Device failure [Unknown]
  - Needle issue [Recovered/Resolved]
